FAERS Safety Report 9515653 (Version 2)
Quarter: 2015Q4

REPORT INFORMATION
  Report Type: Spontaneous
  Country: US (occurrence: US)
  Receive Date: 20130911
  Receipt Date: 20151228
  Transmission Date: 20160305
  Serious: Yes (Life-Threatening, Hospitalization, Other)
  Sender: FDA-Public Use
  Company Number: US-BAYER-2013-108871

PATIENT
  Age: 24 Year
  Sex: Female
  Weight: 86.17 kg

DRUGS (2)
  1. ADENOSINE. [Concomitant]
     Active Substance: ADENOSINE
     Route: 042
  2. YASMIN [Suspect]
     Active Substance: DROSPIRENONE\ETHINYL ESTRADIOL

REACTIONS (2)
  - Acute myocardial infarction [None]
  - Embolism arterial [None]

NARRATIVE: CASE EVENT DATE: 20030817
